FAERS Safety Report 8594643-1 (Version None)
Quarter: 2012Q3

REPORT INFORMATION
  Report Type: 
  Country: None (occurrence: None)
  Receive Date: 20120815
  Receipt Date: 20120813
  Transmission Date: 20120928
  Serious: Yes (Other)
  Sender: FDA-Public Use
  Company Number: US-PFIZER INC-2012160362

PATIENT
  Age: 61 Year
  Sex: Female
  Weight: 54.4 kg

DRUGS (3)
  1. CELEBREX [Suspect]
     Indication: ARTHRITIS
     Dosage: 200 MG, 1 1X/DAY
     Route: 048
     Dates: start: 20120523, end: 20120524
  2. CELEBREX [Suspect]
     Indication: OSTEOARTHRITIS
  3. AMBIEN [Concomitant]
     Indication: INSOMNIA
     Dosage: 10 MG, QHS

REACTIONS (1)
  - PNEUMONIA [None]
